FAERS Safety Report 12349550 (Version 1)
Quarter: 2016Q2

REPORT INFORMATION
  Report Type: Spontaneous
  Country: US (occurrence: US)
  Receive Date: 20160510
  Receipt Date: 20160510
  Transmission Date: 20160815
  Serious: No
  Sender: FDA-Public Use
  Company Number: US-ASTRAZENECA-2016SE47524

PATIENT
  Sex: Female
  Weight: 53.5 kg

DRUGS (2)
  1. TUDORZA PRESSAIR [Suspect]
     Active Substance: ACLIDINIUM BROMIDE
     Indication: CHRONIC OBSTRUCTIVE PULMONARY DISEASE
     Route: 055
  2. OXYGEN. [Concomitant]
     Active Substance: OXYGEN

REACTIONS (9)
  - Tension [Unknown]
  - Inflammation [Unknown]
  - Product quality issue [Unknown]
  - Nervousness [Unknown]
  - Dyspnoea [Unknown]
  - Chest discomfort [Unknown]
  - Drug dose omission [Unknown]
  - Malaise [Unknown]
  - Anxiety [Unknown]
